FAERS Safety Report 10935618 (Version 1)
Quarter: 2015Q1

REPORT INFORMATION
  Report Type: Spontaneous
  Country: AU (occurrence: AU)
  Receive Date: 20150320
  Receipt Date: 20150320
  Transmission Date: 20150721
  Serious: Yes (Other)
  Sender: FDA-Public Use
  Company Number: AU-JNJFOC-20150310965

PATIENT
  Sex: Male

DRUGS (5)
  1. METFORMIN XR [Concomitant]
     Dosage: AT NIGHT
     Route: 065
  2. QUETIAPINE [Concomitant]
     Active Substance: QUETIAPINE
     Route: 065
  3. INVOKANA [Suspect]
     Active Substance: CANAGLIFLOZIN
     Indication: PRODUCT USED FOR UNKNOWN INDICATION
     Route: 048
     Dates: start: 201408
  4. ENDONE [Concomitant]
     Active Substance: OXYCODONE HYDROCHLORIDE
     Dosage: 1-2 THREE TIMES A DAY. PHARMACIST NOT SURE IF THE PATIENT WAS TAKING AS INSTRUCTED BY THE DOCTOR
     Route: 065
  5. PHYSEPTONE [Concomitant]
     Route: 065

REACTIONS (2)
  - Rhabdomyolysis [Unknown]
  - Liver function test abnormal [Not Recovered/Not Resolved]
